FAERS Safety Report 6497759-9 (Version None)
Quarter: 2009Q4

REPORT INFORMATION
  Report Type: 
  Country: None (occurrence: None)
  Receive Date: 20091215
  Receipt Date: 20091208
  Transmission Date: 20100525
  Serious: Yes (Life-Threatening, Hospitalization, Other)
  Sender: FDA-Public Use
  Company Number: US-BAYER-200942456NA

PATIENT
  Sex: Female

DRUGS (1)
  1. YAZ [Suspect]
     Indication: DRUG USE FOR UNKNOWN INDICATION
     Route: 048
     Dates: start: 20060101, end: 20080701

REACTIONS (7)
  - COLITIS [None]
  - FATIGUE [None]
  - GALLBLADDER DISORDER [None]
  - ORGAN FAILURE [None]
  - PAIN [None]
  - PANCREATITIS [None]
  - WEIGHT DECREASED [None]
